FAERS Safety Report 4661089-8 (Version None)
Quarter: 2005Q2

REPORT INFORMATION
  Report Type: 
  Country: None (occurrence: None)
  Receive Date: 20050511
  Receipt Date: 20050504
  Transmission Date: 20051028
  Serious: Yes (Hospitalization, Other)
  Sender: FDA-Public Use
  Company Number: ESWYE601820APR05

PATIENT
  Age: 69 Year
  Sex: Female

DRUGS (7)
  1. RAPAMUNE [Suspect]
     Indication: PROPHYLAXIS AGAINST TRANSPLANT REJECTION
     Dosage: 1 MG 1X PER 1 DAY
     Route: 048
     Dates: start: 20020805, end: 20050323
  2. TACROLIMUS (TACROLIMUS) [Concomitant]
  3. FUROSEMIDE [Concomitant]
  4. LEVOTHROID [Concomitant]
  5. LOSARTAN (LOSARTAN) [Concomitant]
  6. INSULIN [Concomitant]
  7. ZOCOR [Concomitant]

REACTIONS (6)
  - ASTHENIA [None]
  - CARDIOMEGALY [None]
  - DYSPNOEA EXERTIONAL [None]
  - OEDEMA [None]
  - PERICARDIAL EFFUSION [None]
  - PLEURAL EFFUSION [None]
